FAERS Safety Report 16863436 (Version 3)
Quarter: 2019Q4

REPORT INFORMATION
  Report Type: Report from Study
  Country: US (occurrence: US)
  Receive Date: 20190927
  Receipt Date: 20191009
  Transmission Date: 20200122
  Serious: Yes (Life-Threatening, Hospitalization, Disabling, Other)
  Sender: FDA-Public Use
  Company Number: US-AMGEN-USACT2019159476

PATIENT
  Age: 19 Year
  Sex: Male
  Weight: 112.8 kg

DRUGS (24)
  1. PEG/L-ASPARAGINASE [Concomitant]
     Active Substance: PEGASPARGASE
     Dosage: 6150 UNK
     Dates: start: 20190916
  2. METHOTREXATE. [Concomitant]
     Active Substance: METHOTREXATE
     Dosage: 15 MILLIGRAM
     Dates: start: 20190828
  3. MITOXANTRONE [Concomitant]
     Active Substance: MITOXANTRONE HYDROCHLORIDE
     Dosage: UNK
  4. LIDOCAINE. [Concomitant]
     Active Substance: LIDOCAINE
     Dosage: 1 UNK
     Route: 061
     Dates: start: 20190913, end: 20190927
  5. VINCRISTINE [Concomitant]
     Active Substance: VINCRISTINE
     Dosage: 2 MILLIGRAM
     Dates: start: 20190913
  6. PEG 3350 [Concomitant]
     Active Substance: POLYETHYLENE GLYCOL 3350
     Dosage: 17 GRAM
     Route: 048
     Dates: start: 20190913, end: 20190916
  7. MORPHINE [Concomitant]
     Active Substance: MORPHINE
     Dosage: 15 MILLIGRAM
     Route: 048
     Dates: start: 20190913, end: 20190925
  8. CARFILZOMIB [Suspect]
     Active Substance: CARFILZOMIB
     Indication: ACUTE LYMPHOCYTIC LEUKAEMIA
     Dosage: 123 MILLIGRAM, PER CHEMO REGIM
     Route: 042
     Dates: start: 20190913
  9. CYTARABINE. [Concomitant]
     Active Substance: CYTARABINE
     Dosage: 185 MILLIGRAM
     Route: 042
     Dates: start: 20190821
  10. CYCLOPHOSPHAMIDE. [Concomitant]
     Active Substance: CYCLOPHOSPHAMIDE
     Dosage: 2470 MILLIGRAM
     Dates: start: 20190821
  11. LEVOFLOXACIN. [Concomitant]
     Active Substance: LEVOFLOXACIN
     Dosage: 750 MICROGRAM
     Route: 048
     Dates: start: 20190912, end: 20190912
  12. NELARABINE [Concomitant]
     Active Substance: NELARABINE
     Dosage: 1500 MILLIGRAM
     Route: 042
     Dates: start: 20190813, end: 20190817
  13. DEXTROSE SODIUM CHLORIDE [Concomitant]
     Dosage: 150 MILLILITER (5/0.45 PERCENT)
     Route: 042
     Dates: start: 20190912, end: 20190914
  14. CEFEPIME [Concomitant]
     Active Substance: CEFEPIME HYDROCHLORIDE
     Dosage: 2000 MILLIGRAM
     Route: 042
     Dates: start: 20190812, end: 20190925
  15. DAUNORUBICIN [Concomitant]
     Active Substance: DAUNORUBICIN
     Dosage: 62.5 MILLIGRAM
     Dates: start: 20190913
  16. DEXAMETHASONE. [Concomitant]
     Active Substance: DEXAMETHASONE
     Dosage: 7.5 MILLIGRAM
     Dates: start: 20190913
  17. CHLORHEXIDINE [Concomitant]
     Active Substance: CHLORHEXIDINE
     Dosage: 5 MILLILITER
     Route: 050
     Dates: start: 20190912
  18. OMEPRAZOLE. [Concomitant]
     Active Substance: OMEPRAZOLE
     Dosage: 20 MILLIGRAM
     Route: 048
     Dates: start: 20190912, end: 20190925
  19. ACYCLOVIR [ACICLOVIR] [Concomitant]
     Active Substance: ACYCLOVIR
     Dosage: 400 MICROGRAM AND 400 MILLIGRAM
     Route: 048
     Dates: start: 20181127, end: 20190925
  20. ACETAMINOPHEN. [Concomitant]
     Active Substance: ACETAMINOPHEN
     Dosage: 500 MILLIGRAM
     Route: 048
     Dates: start: 20190912, end: 20190912
  21. MERCAPTOPURINE. [Concomitant]
     Active Substance: MERCAPTOPURINE
     Dosage: UNK
  22. HEPARIN PORCINE [Concomitant]
     Dosage: 3 MILLILITER
     Route: 050
     Dates: start: 20190912, end: 20190925
  23. LIDOCAINE/PRILOCAINE [Concomitant]
     Active Substance: LIDOCAINE\PRILOCAINE
     Dosage: 1 UNK
     Route: 061
     Dates: start: 20190913, end: 20190927
  24. SCOPOLAMINE [HYOSCINE] [Concomitant]
     Active Substance: SCOPOLAMINE
     Dosage: 1.5 MILLIGRAM
     Route: 050
     Dates: start: 20190819

REACTIONS (3)
  - Acute respiratory failure [Not Recovered/Not Resolved]
  - Septic shock [Not Recovered/Not Resolved]
  - Encephalopathy [Not Recovered/Not Resolved]

NARRATIVE: CASE EVENT DATE: 20190926
